FAERS Safety Report 16113214 (Version 1)
Quarter: 2019Q1

REPORT INFORMATION
  Report Type: Spontaneous
  Country: DK (occurrence: DK)
  Receive Date: 20190325
  Receipt Date: 20190325
  Transmission Date: 20190418
  Serious: Yes (Hospitalization, Disabling)
  Sender: FDA-Public Use
  Company Number: DK-MYLANLABS-16X-044-1261051-00

PATIENT
  Age: 48 Year
  Sex: Female

DRUGS (3)
  1. TODOLAC [Suspect]
     Active Substance: ETODOLAC
     Indication: BACK PAIN
     Dosage: UNK
     Route: 048
     Dates: start: 200904, end: 201307
  2. PANODIL [Concomitant]
     Active Substance: ACETAMINOPHEN
     Indication: BACK PAIN
     Dosage: UNK
     Dates: start: 2003
  3. IBUPROFEN. [Suspect]
     Active Substance: IBUPROFEN
     Indication: BACK PAIN
     Dosage: UNK
     Route: 048
     Dates: start: 2003, end: 200904

REACTIONS (11)
  - Palpitations [Unknown]
  - Dyspnoea [Recovered/Resolved]
  - Mental disorder [Unknown]
  - Cardiac failure chronic [Not Recovered/Not Resolved]
  - Fatigue [Not Recovered/Not Resolved]
  - Peripheral swelling [Unknown]
  - Impaired work ability [Not Recovered/Not Resolved]
  - Loss of personal independence in daily activities [Not Recovered/Not Resolved]
  - Cardiac failure [Unknown]
  - Cardiomegaly [Unknown]
  - Dyspnoea exertional [Not Recovered/Not Resolved]

NARRATIVE: CASE EVENT DATE: 201312
